FAERS Safety Report 5500552-4 (Version None)
Quarter: 2007Q4

REPORT INFORMATION
  Report Type: 
  Country: None (occurrence: None)
  Receive Date: 20071029
  Receipt Date: 20071023
  Transmission Date: 20080405
  Serious: Yes (Other)
  Sender: FDA-Public Use
  Company Number: JP-BRISTOL-MYERS SQUIBB COMPANY-13956735

PATIENT
  Age: 53 Year
  Sex: Female

DRUGS (4)
  1. PARAPLATIN [Suspect]
     Indication: UTERINE LEIOMYOSARCOMA
     Route: 041
  2. IFOMIDE [Suspect]
     Route: 041
  3. DOXORUBICIN HCL [Suspect]
     Route: 042
  4. DORMICUM [Suspect]
     Route: 042

REACTIONS (2)
  - BONE MARROW FAILURE [None]
  - EXTRAPYRAMIDAL DISORDER [None]
